FAERS Safety Report 12263865 (Version 3)
Quarter: 2017Q2

REPORT INFORMATION
  Report Type: Report from Study
  Country: IT (occurrence: IT)
  Receive Date: 20160413
  Receipt Date: 20170607
  Transmission Date: 20170830
  Serious: Yes (Death, Hospitalization)
  Sender: FDA-Public Use
  Company Number: PHHO2010IT020636

PATIENT
  Age: 76 Year
  Sex: Male
  Weight: 65 kg

DRUGS (4)
  1. CHLORAMBUCIL [Suspect]
     Active Substance: CHLORAMBUCIL
     Indication: CHRONIC LYMPHOCYTIC LEUKAEMIA
     Dosage: 10 MG, DAYS 1 TO 7 EVERY 28 DAYS
     Route: 048
     Dates: start: 20100118, end: 20100124
  2. OFATUMUMAB [Suspect]
     Active Substance: OFATUMUMAB
     Dosage: 1000 MG, UNK
     Route: 042
     Dates: start: 20100315, end: 20100315
  3. CHLORAMBUCIL [Suspect]
     Active Substance: CHLORAMBUCIL
     Dosage: 10 MG/M2, DAYS 1 TO 7 EVERY 28 DAYS
     Route: 048
     Dates: start: 20100315, end: 20100321
  4. OFATUMUMAB [Suspect]
     Active Substance: OFATUMUMAB
     Indication: CHRONIC LYMPHOCYTIC LEUKAEMIA
     Dosage: 300 MG, UNK
     Route: 042
     Dates: start: 20100118, end: 20100118

REACTIONS (3)
  - Respiratory failure [Fatal]
  - Pneumonia [Recovered/Resolved with Sequelae]
  - Hypotension [Fatal]

NARRATIVE: CASE EVENT DATE: 20100403
